FAERS Safety Report 14304758 (Version 1)
Quarter: 2017Q4

REPORT INFORMATION
  Report Type: Spontaneous
  Country: US (occurrence: US)
  Receive Date: 20171219
  Receipt Date: 20171219
  Transmission Date: 20180321
  Serious: Yes (Other)
  Sender: FDA-Public Use
  Company Number: US-OTSUKA-12183703

PATIENT
  Sex: Male
  Weight: 34.01 kg

DRUGS (4)
  1. TRILEPTAL [Concomitant]
     Active Substance: OXCARBAZEPINE
     Indication: PRODUCT USED FOR UNKNOWN INDICATION
     Dosage: UNK
     Route: 065
  2. CLONIDINE HYDROCHLORIDE. [Concomitant]
     Active Substance: CLONIDINE HYDROCHLORIDE
     Indication: PRODUCT USED FOR UNKNOWN INDICATION
     Dosage: UNK
     Route: 065
  3. CLONIDINE. [Concomitant]
     Active Substance: CLONIDINE
     Indication: PRODUCT USED FOR UNKNOWN INDICATION
     Dosage: UNK
     Route: 065
  4. ABILIFY [Suspect]
     Active Substance: ARIPIPRAZOLE
     Indication: AUTISM SPECTRUM DISORDER
     Dosage: PATIENT TAKES HALF OF A 10 MG TABLET
     Route: 048
     Dates: start: 20030206, end: 20030211

REACTIONS (7)
  - Oropharyngeal pain [Unknown]
  - Lethargy [Unknown]
  - Chest pain [Unknown]
  - Peripheral coldness [Unknown]
  - Tachycardia [Unknown]
  - Abdominal pain upper [Unknown]
  - Pharyngitis [Unknown]

NARRATIVE: CASE EVENT DATE: 20030206
